FAERS Safety Report 8319259-3 (Version None)
Quarter: 2012Q2

REPORT INFORMATION
  Report Type: 
  Country: None (occurrence: None)
  Receive Date: 20120427
  Receipt Date: 20120418
  Transmission Date: 20120825
  Serious: Yes (Hospitalization, Other)
  Sender: FDA-Public Use
  Company Number: AU-ASTRAZENECA-2012SE08227

PATIENT
  Age: 37 Year
  Sex: Male

DRUGS (6)
  1. SEROQUEL [Suspect]
     Dosage: DOSE INCREASED
     Route: 048
     Dates: start: 20120206
  2. ATIVAN [Concomitant]
  3. CLOPIXOL [Suspect]
     Dosage: DEPOT
     Route: 065
     Dates: end: 20120206
  4. SEROQUEL [Suspect]
     Route: 048
     Dates: start: 20080101
  5. CLOZAPINE [Suspect]
     Route: 065
     Dates: start: 20090101
  6. ANTIPSYCHOTICS [Concomitant]

REACTIONS (18)
  - OVERDOSE [None]
  - DIABETES MELLITUS [None]
  - DRUG PRESCRIBING ERROR [None]
  - SYNCOPE [None]
  - RENAL FAILURE [None]
  - DRUG WITHDRAWAL SYNDROME [None]
  - DEHYDRATION [None]
  - ADVERSE DRUG REACTION [None]
  - HOSTILITY [None]
  - AGGRESSION [None]
  - DELUSION [None]
  - HALLUCINATION [None]
  - HAEMOPTYSIS [None]
  - DIARRHOEA [None]
  - SUICIDAL IDEATION [None]
  - PHYSICAL ASSAULT [None]
  - NEUROLEPTIC MALIGNANT SYNDROME [None]
  - VOMITING [None]
